FAERS Safety Report 9124045 (Version 1)
Quarter: 2013Q1

REPORT INFORMATION
  Report Type: Spontaneous
  Country: US (occurrence: US)
  Receive Date: 20130116
  Receipt Date: 20130116
  Transmission Date: 20140127
  Serious: Yes (Hospitalization, Other)
  Sender: FDA-Public Use
  Company Number: US-PFIZER INC-2013016141

PATIENT
  Sex: Female

DRUGS (1)
  1. LYRICA [Suspect]
     Dosage: UNK

REACTIONS (5)
  - Suicidal ideation [Unknown]
  - Neuralgia [Unknown]
  - Blood pressure increased [Unknown]
  - Dehydration [Unknown]
  - Decreased appetite [Unknown]
